FAERS Safety Report 19188510 (Version 1)
Quarter: 2021Q2

REPORT INFORMATION
  Report Type: Spontaneous
  Country: JP (occurrence: JP)
  Receive Date: 20210428
  Receipt Date: 20210428
  Transmission Date: 20210717
  Serious: Yes (Other)
  Sender: FDA-Public Use
  Company Number: NVSJ2021JP006271

PATIENT
  Sex: Female
  Weight: 1.86 kg

DRUGS (3)
  1. NEORAL [Suspect]
     Active Substance: CYCLOSPORINE
     Indication: FOETAL EXPOSURE DURING PREGNANCY
     Dosage: MATERNAL DOSE: 150MG/DAY
     Route: 064
  2. PREDONINE [Concomitant]
     Active Substance: PREDNISOLONE
     Indication: FOETAL EXPOSURE DURING PREGNANCY
     Dosage: MATERNAL DOSE: 5 MG/DAY
     Route: 064
  3. IMURAN [Concomitant]
     Active Substance: AZATHIOPRINE
     Indication: FOETAL EXPOSURE DURING PREGNANCY
     Dosage: MATERNAL DOSE: 100 MG/DAY
     Route: 064

REACTIONS (4)
  - Renal aplasia [Unknown]
  - Low birth weight baby [Unknown]
  - Congenital cystic kidney disease [Unknown]
  - Foetal exposure during pregnancy [Unknown]
